FAERS Safety Report 4908349-0 (Version None)
Quarter: 2006Q1

REPORT INFORMATION
  Report Type: 
  Country: None (occurrence: None)
  Receive Date: 20060210
  Receipt Date: 20050602
  Transmission Date: 20060701
  Serious: Yes (Hospitalization)
  Sender: FDA-Public Use
  Company Number: DE-ABBOTT-05P-062-0302484-00

PATIENT
  Sex: Male
  Weight: 65 kg

DRUGS (14)
  1. HUMIRA [Suspect]
     Indication: RHEUMATOID ARTHRITIS
     Route: 058
     Dates: start: 20031101
  2. HUMIRA [Suspect]
     Route: 058
     Dates: start: 20040116
  3. HUMIRA [Suspect]
     Route: 058
     Dates: start: 20040401
  4. HUMIRA [Suspect]
     Route: 058
     Dates: start: 20040701
  5. HUMIRA [Suspect]
     Route: 058
     Dates: start: 20050119
  6. METHOTREXATE [Concomitant]
     Indication: RHEUMATOID ARTHRITIS
     Route: 048
     Dates: start: 19950101
  7. METHOTREXATE [Concomitant]
     Dates: start: 20040101
  8. METHOTREXATE [Concomitant]
     Dates: start: 20050501
  9. METHOTREXATE [Concomitant]
  10. METHOTREXATE [Concomitant]
  11. METHOTREXATE [Concomitant]
  12. VALORON [Concomitant]
     Indication: RHEUMATOID ARTHRITIS
     Route: 048
  13. CELECOXIB [Concomitant]
     Indication: RHEUMATOID ARTHRITIS
     Route: 048
  14. UNSPECIFIED CONTROL MEDICATION [Concomitant]
     Indication: DRUG USE FOR UNKNOWN INDICATION
     Dates: start: 20050719

REACTIONS (2)
  - LYMPHADENOPATHY [None]
  - WEIGHT DECREASED [None]
